FAERS Safety Report 15964652 (Version 1)
Quarter: 2019Q1

REPORT INFORMATION
  Report Type: Spontaneous
  Country: US (occurrence: US)
  Receive Date: 20190215
  Receipt Date: 20190215
  Transmission Date: 20190418
  Serious: No
  Sender: FDA-Public Use
  Company Number: US-SHIRE-US201905000

PATIENT
  Sex: Female

DRUGS (3)
  1. GATTEX [Suspect]
     Active Substance: TEDUGLUTIDE\WATER
     Indication: OFF LABEL USE
     Dosage: UNK, 1X/DAY:QD
     Route: 058
     Dates: start: 20171115, end: 20190124
  2. IRON [Concomitant]
     Active Substance: IRON
     Indication: PRODUCT USED FOR UNKNOWN INDICATION
  3. GATTEX [Suspect]
     Active Substance: TEDUGLUTIDE\WATER
     Dosage: EVERY OTHER DAY
     Route: 058
     Dates: start: 20190201

REACTIONS (4)
  - Polyp [Unknown]
  - Stoma complication [Unknown]
  - Off label use [Unknown]
  - Gallbladder disorder [Unknown]
